FAERS Safety Report 9163262 (Version 2)
Quarter: 2013Q2

REPORT INFORMATION
  Report Type: Spontaneous
  Country: JP (occurrence: JP)
  Receive Date: 20130314
  Receipt Date: 20130607
  Transmission Date: 20140414
  Serious: Yes (Other)
  Sender: FDA-Public Use
  Company Number: JP-GLAXOSMITHKLINE-B0873439A

PATIENT
  Sex: Male

DRUGS (2)
  1. PAXIL [Suspect]
     Indication: OBSESSIVE-COMPULSIVE DISORDER
     Dosage: 25MG TWICE PER DAY
     Route: 048
     Dates: start: 20120331, end: 20130225
  2. TRAMCET [Concomitant]
     Indication: PAIN
     Dosage: 2IUAX THREE TIMES PER DAY
     Route: 048
     Dates: start: 201301, end: 20130225

REACTIONS (1)
  - Serotonin syndrome [Recovering/Resolving]
